FAERS Safety Report 7244920-1 (Version None)
Quarter: 2011Q1

REPORT INFORMATION
  Report Type: 
  Country: None (occurrence: None)
  Receive Date: 20110126
  Receipt Date: 20110119
  Transmission Date: 20110831
  Serious: Yes (Hospitalization, Other)
  Sender: FDA-Public Use
  Company Number: US-ELI_LILLY_AND_COMPANY-US201101005250

PATIENT
  Sex: Female

DRUGS (1)
  1. HUMATROPE [Suspect]
     Dosage: 0.2 MG, DAILY (1/D)
     Route: 058

REACTIONS (3)
  - FLUID OVERLOAD [None]
  - HYPOTENSION [None]
  - PNEUMONIA [None]
